FAERS Safety Report 6901984-X (Version None)
Quarter: 2010Q3

REPORT INFORMATION
  Report Type: 
  Country: None (occurrence: None)
  Receive Date: 20100803
  Receipt Date: 20080331
  Transmission Date: 20110219
  Serious: Yes (Other)
  Sender: FDA-Public Use
  Company Number: US-PFIZER INC-2008008436

PATIENT
  Sex: Female
  Weight: 61.2 kg

DRUGS (6)
  1. LYRICA [Suspect]
     Indication: SLEEP DISORDER
     Dosage: AT BEDTIME
     Dates: start: 20070901, end: 20080101
  2. LYRICA [Suspect]
     Indication: PAIN
  3. SELEGILINE HYDROCHLORIDE [Concomitant]
  4. REQUIP [Concomitant]
  5. SINEMET [Concomitant]
  6. NAPROXEN [Concomitant]

REACTIONS (5)
  - DERMATITIS ACNEIFORM [None]
  - EYE IRRITATION [None]
  - EYE PRURITUS [None]
  - LACRIMATION INCREASED [None]
  - OCULAR HYPERAEMIA [None]
